FAERS Safety Report 12201841 (Version 2)
Quarter: 2016Q2

REPORT INFORMATION
  Report Type: Spontaneous
  Country: US (occurrence: US)
  Receive Date: 20160322
  Receipt Date: 20160606
  Transmission Date: 20160815
  Serious: Yes (Hospitalization, Other)
  Sender: FDA-Public Use
  Company Number: US-SMITH AND NEPHEW, INC-2016SMT00238

PATIENT
  Age: 46 Year
  Sex: Female
  Weight: 90.7 kg

DRUGS (11)
  1. REGRANEX [Suspect]
     Active Substance: BECAPLERMIN
     Indication: DIABETIC FOOT
     Dosage: UNK, 1X/DAY
     Route: 061
     Dates: start: 2016, end: 20160308
  2. OXYGEN. [Concomitant]
     Active Substance: OXYGEN
     Dosage: UNK
  3. UNSPECIFIED INHALER [Concomitant]
     Active Substance: UNSPECIFIED INGREDIENT
     Dosage: UNK
  4. LANTUS [Concomitant]
     Active Substance: INSULIN GLARGINE
     Dosage: 90 U, 1X/DAY
  5. VITAMIN C [Concomitant]
     Active Substance: ASCORBIC ACID
     Dosage: UNK
  6. NITROSTAT [Concomitant]
     Active Substance: NITROGLYCERIN
  7. HUMALOG [Concomitant]
     Active Substance: INSULIN LISPRO
     Dosage: UNK, AS NEEDED
  8. ASPIRIN. [Concomitant]
     Active Substance: ASPIRIN
     Dosage: 325 MG, 1X/DAY
  9. VITAMIN D [Concomitant]
     Active Substance: CHOLECALCIFEROL
     Dosage: UNK
  10. UNSPECIFIED BLOOD THINNER [Concomitant]
     Active Substance: UNSPECIFIED INGREDIENT
     Dosage: UNK
  11. SIMVASTATIN. [Concomitant]
     Active Substance: SIMVASTATIN
     Dosage: UNK

REACTIONS (16)
  - Osteonecrosis [Recovered/Resolved with Sequelae]
  - Chronic kidney disease [Unknown]
  - Gangrene [Unknown]
  - Application site infection [Unknown]
  - Toe amputation [Recovered/Resolved with Sequelae]
  - Candida test positive [Unknown]
  - Escherichia test positive [Unknown]
  - Tobacco user [Unknown]
  - Cellulitis [Unknown]
  - Abscess limb [Recovered/Resolved]
  - Obesity [Unknown]
  - Osteomyelitis [Recovered/Resolved with Sequelae]
  - Pseudohyponatraemia [Unknown]
  - Anxiety [Unknown]
  - Sepsis [Unknown]
  - Essential hypertension [Unknown]

NARRATIVE: CASE EVENT DATE: 201603
